FAERS Safety Report 8027629-6 (Version None)
Quarter: 2012Q1

REPORT INFORMATION
  Report Type: 
  Country: None (occurrence: None)
  Receive Date: 20120105
  Receipt Date: 20120105
  Transmission Date: 20120608
  Serious: Yes (Life-Threatening, Hospitalization)
  Sender: FDA-Public Use
  Company Number: None

PATIENT
  Age: 69 Year
  Sex: Male
  Weight: 56.3 kg

DRUGS (1)
  1. PHENYTOIN [Suspect]
     Indication: CONVULSION
     Dosage: 400 MG EVERY DAY PO
     Route: 048
     Dates: start: 19990126, end: 20110625

REACTIONS (6)
  - FALL [None]
  - DIZZINESS [None]
  - CONFUSIONAL STATE [None]
  - SEDATION [None]
  - ATAXIA [None]
  - NYSTAGMUS [None]
